FAERS Safety Report 7719552-9 (Version None)
Quarter: 2011Q3

REPORT INFORMATION
  Report Type: 
  Country: None (occurrence: None)
  Receive Date: 20110830
  Receipt Date: 20110826
  Transmission Date: 20111222
  Serious: Yes (Other)
  Sender: FDA-Public Use
  Company Number: BR-ABBOTT-10P-020-0671685-00

PATIENT
  Sex: Female
  Weight: 82 kg

DRUGS (8)
  1. FOLIC ACID [Concomitant]
     Indication: IMMUNE SYSTEM DISORDER
     Route: 048
     Dates: start: 20110201
  2. PREDNISONE [Concomitant]
     Indication: PAIN
  3. MELOXICAM [Concomitant]
     Indication: ANTIINFLAMMATORY THERAPY
  4. HUMIRA [Suspect]
     Dates: start: 20110204
  5. ARAVA [Concomitant]
     Indication: RHEUMATOID ARTHRITIS
     Route: 048
     Dates: start: 20091101
  6. HUMIRA [Suspect]
     Indication: RHEUMATOID ARTHRITIS
     Route: 058
     Dates: start: 20090927, end: 20110114
  7. PREDNISONE [Concomitant]
     Indication: RHEUMATOID ARTHRITIS
     Route: 048
  8. MELOXICAM [Concomitant]
     Indication: RHEUMATOID ARTHRITIS
     Route: 048

REACTIONS (12)
  - ANAESTHETIC COMPLICATION [None]
  - ABSCESS [None]
  - VOMITING [None]
  - WEIGHT LOSS POOR [None]
  - BUNION [None]
  - PURULENT DISCHARGE [None]
  - ACQUIRED CLAW TOE [None]
  - HYPERKERATOSIS [None]
  - WEIGHT INCREASED [None]
  - JOINT RANGE OF MOTION DECREASED [None]
  - INFLAMMATION [None]
  - ANAL NEOPLASM [None]
